FAERS Safety Report 11587391 (Version 1)
Quarter: 2015Q3

REPORT INFORMATION
  Report Type: Spontaneous
  Country: US (occurrence: US)
  Receive Date: 20150916
  Receipt Date: 20150916
  Transmission Date: 20151125
  Serious: No
  Sender: FDA-Public Use
  Company Number: US-ELI_LILLY_AND_COMPANY-US200802000546

PATIENT
  Age: 80 Year
  Sex: Female

DRUGS (6)
  1. CALCIUM AND ERGOCALCIFEROL [Concomitant]
     Dosage: UNK D/F, 3/D
  2. PRAVACHOL [Concomitant]
     Active Substance: PRAVASTATIN SODIUM
  3. BABY ASPIRIN [Concomitant]
     Active Substance: ASPIRIN
  4. FORTEO [Suspect]
     Active Substance: TERIPARATIDE
     Indication: OSTEOPOROSIS
     Dosage: UNK, UNK
     Dates: start: 20080201, end: 20080203
  5. CORTICOSTEROID NOS [Concomitant]
     Active Substance: CORTICOSTEROID NOS
  6. FORTEO [Suspect]
     Active Substance: TERIPARATIDE
     Dates: start: 200802

REACTIONS (6)
  - Dizziness [Recovered/Resolved]
  - Poor quality sleep [Recovered/Resolved]
  - Contusion [Unknown]
  - Feeling cold [Recovered/Resolved]
  - Throat irritation [Recovered/Resolved]
  - Paraesthesia [Recovered/Resolved]

NARRATIVE: CASE EVENT DATE: 200802
